FAERS Safety Report 19900447 (Version 1)
Quarter: 2021Q3

REPORT INFORMATION
  Report Type: Report from Study
  Country: DE (occurrence: DE)
  Receive Date: 20210930
  Receipt Date: 20210930
  Transmission Date: 20211014
  Serious: Yes (Hospitalization, Other)
  Sender: FDA-Public Use
  Company Number: DE-TEVA-2021-DE-1957477

PATIENT
  Age: 42 Year
  Sex: Female
  Weight: 61 kg

DRUGS (23)
  1. OCREVUS [Suspect]
     Active Substance: OCRELIZUMAB
     Dosage: 600 MG
     Route: 042
  2. AMITRIPTYLIN [Concomitant]
     Active Substance: AMITRIPTYLINE
     Indication: PAIN
     Dosage: 25 MG
     Route: 048
     Dates: start: 2019
  3. OXYCODON [Suspect]
     Active Substance: OXYCODONE
     Dosage: 20 MG
     Route: 065
     Dates: end: 20210513
  4. NALOXON [Suspect]
     Active Substance: NALOXONE HYDROCHLORIDE
     Indication: PRODUCT USED FOR UNKNOWN INDICATION
     Dosage: TOGETHER WITH OXYCODON, 5 MG
     Route: 065
     Dates: end: 20210513
  5. PANTOPRAZOL [PANTOPRAZOLE] [Suspect]
     Active Substance: PANTOPRAZOLE
     Indication: PRODUCT USED FOR UNKNOWN INDICATION
     Dosage: 20 MG
     Route: 065
  6. OCREVUS [Suspect]
     Active Substance: OCRELIZUMAB
     Indication: SECONDARY PROGRESSIVE MULTIPLE SCLEROSIS
     Dosage: 300 MG
     Route: 042
     Dates: start: 20200206
  7. COMIRNATY [Suspect]
     Active Substance: TOZINAMERAN
     Indication: COVID-19 IMMUNISATION
     Dosage: NEXT DOSE ON: 28/MAY/2021
     Route: 065
  8. AMITRIPTYLIN [Concomitant]
     Active Substance: AMITRIPTYLINE
     Dosage: 50 MILLIGRAM DAILY; 0?0?1
  9. OCREVUS [Suspect]
     Active Substance: OCRELIZUMAB
     Dosage: 2X 10 MILLILITRES, 600 MG
     Route: 042
  10. OCREVUS [Suspect]
     Active Substance: OCRELIZUMAB
     Dosage: 300 MG
     Route: 042
     Dates: start: 20200220
  11. MIRTAZAPIN [Concomitant]
     Active Substance: MIRTAZAPINE
     Dosage: 7.5 MG
  12. PREGABALIN. [Concomitant]
     Active Substance: PREGABALIN
     Indication: PAIN
     Dosage: 2?2?2, 100 MG
  13. JUBRELE [Concomitant]
     Active Substance: DESOGESTREL
  14. AMITRIPTYLIN [Concomitant]
     Active Substance: AMITRIPTYLINE
     Dosage: 25 MILLIGRAM DAILY; 0?0?1
  15. PREGABALIN. [Concomitant]
     Active Substance: PREGABALIN
     Dosage: 600 MG
     Route: 048
     Dates: start: 2019
  16. SATIVEX [Suspect]
     Active Substance: NABIXIMOLS
     Indication: PRODUCT USED FOR UNKNOWN INDICATION
     Dosage: SPRAY, 2?2?2, 2 PUFFS EACH, 2 DF
     Route: 065
  17. PARACETAMOL [Concomitant]
     Active Substance: ACETAMINOPHEN
     Dosage: UP TO 3 TIMES PER DAY
  18. MOVICOL [Concomitant]
     Active Substance: POLYETHYLENE GLYCOL 3350\POTASSIUM CHLORIDE\SODIUM BICARBONATE\SODIUM CHLORIDE
     Dosage: 1 DOSAGE FORMS DAILY; 1?0?0
  19. PREGABALIN. [Concomitant]
     Active Substance: PREGABALIN
     Dosage: 200 MG
  20. PREGABALIN. [Concomitant]
     Active Substance: PREGABALIN
     Dosage: 600 MG
  21. OXYCODON [Suspect]
     Active Substance: OXYCODONE
     Indication: PAIN
     Dosage: TOGETHER WITH NALOXON, 10 MG
     Route: 065
  22. CORTISONE [Suspect]
     Active Substance: CORTISONE
     Indication: PRODUCT USED FOR UNKNOWN INDICATION
     Route: 065
  23. DULOXETINE. [Concomitant]
     Active Substance: DULOXETINE
     Dosage: 1?0?1, 30 MG

REACTIONS (50)
  - Coordination abnormal [Recovered/Resolved]
  - Menstruation irregular [Unknown]
  - Fatigue [Recovered/Resolved]
  - Asthenia [Recovered/Resolved]
  - Pain in extremity [Not Recovered/Not Resolved]
  - Memory impairment [Unknown]
  - Tooth injury [Not Recovered/Not Resolved]
  - Joint range of motion decreased [Recovered/Resolved]
  - Muscle spasms [Recovering/Resolving]
  - Dyspnoea [Recovered/Resolved]
  - Head discomfort [Recovered/Resolved]
  - Loss of consciousness [Unknown]
  - Cognitive disorder [Recovered/Resolved]
  - Dysphagia [Recovered/Resolved]
  - Eye pain [Recovering/Resolving]
  - Fatigue [Recovered/Resolved]
  - Fall [Unknown]
  - Muscular weakness [Recovered/Resolved]
  - Urinary incontinence [Recovered/Resolved]
  - Fatigue [Recovered/Resolved]
  - Ocular discomfort [Recovering/Resolving]
  - Musculoskeletal stiffness [Recovered/Resolved]
  - Back pain [Recovering/Resolving]
  - Tongue movement disturbance [Recovering/Resolving]
  - Feeling cold [Recovered/Resolved]
  - Dry skin [Not Recovered/Not Resolved]
  - Vaginal discharge [Unknown]
  - Odynophagia [Recovering/Resolving]
  - Dyskinesia [Recovered/Resolved]
  - Off label use [Unknown]
  - Headache [Not Recovered/Not Resolved]
  - Fungal skin infection [Recovered/Resolved]
  - Vomiting [Recovered/Resolved]
  - Painful respiration [Recovered/Resolved]
  - Constipation [Recovered/Resolved]
  - Fatigue [Recovered/Resolved]
  - Speech disorder [Recovered/Resolved]
  - Alopecia [Recovering/Resolving]
  - Multiple sclerosis relapse [Recovered/Resolved]
  - Sensory disturbance [Not Recovered/Not Resolved]
  - Chills [Recovered/Resolved]
  - Photophobia [Recovered/Resolved]
  - Muscle spasticity [Recovered/Resolved]
  - Chills [Recovered/Resolved]
  - Mood swings [Recovered/Resolved]
  - Pain [Recovering/Resolving]
  - Arthralgia [Recovering/Resolving]
  - Irritability [Recovering/Resolving]
  - Anal incontinence [Recovered/Resolved]
  - Hyperacusis [Recovered/Resolved]

NARRATIVE: CASE EVENT DATE: 20200206
